FAERS Safety Report 19821333 (Version 1)
Quarter: 2021Q3

REPORT INFORMATION
  Report Type: Spontaneous
  Country: US (occurrence: US)
  Receive Date: 20210913
  Receipt Date: 20210913
  Transmission Date: 20211014
  Serious: Yes (Other)
  Sender: FDA-Public Use
  Company Number: None

PATIENT
  Age: 77 Year
  Sex: Male
  Weight: 90.45 kg

DRUGS (8)
  1. REGEN?COV [Suspect]
     Active Substance: CASIRIVIMAB\IMDEVIMAB
     Indication: COVID-19
     Dosage: ?          OTHER FREQUENCY:ONCE;?
     Route: 041
     Dates: start: 20210912, end: 20210912
  2. OMEPRAZOLE 40MG [Concomitant]
     Active Substance: OMEPRAZOLE
     Dates: start: 20210101
  3. LISINOPRIL 10 MG [Concomitant]
     Active Substance: LISINOPRIL
     Dates: start: 20210101
  4. ASPIRIN 81 MG [Concomitant]
     Active Substance: ASPIRIN
     Dates: start: 20210101
  5. NAPROXEN 500 MG [Concomitant]
     Active Substance: NAPROXEN
     Dates: start: 20210101
  6. ATORVASTATIN 40 MG [Concomitant]
     Active Substance: ATORVASTATIN
     Dates: start: 20210101
  7. CODEINE SULFATE 60 MG [Concomitant]
     Dates: start: 20210101
  8. FUROSEMIDE 40 MG [Concomitant]
     Active Substance: FUROSEMIDE
     Dates: start: 20210101

REACTIONS (2)
  - Diarrhoea [None]
  - Dyspnoea [None]

NARRATIVE: CASE EVENT DATE: 20210912
